FAERS Safety Report 23310267 (Version 1)
Quarter: 2023Q4

REPORT INFORMATION
  Report Type: Spontaneous
  Country: US (occurrence: None)
  Receive Date: 20231218
  Receipt Date: 20231218
  Transmission Date: 20240110
  Serious: Yes (Other)
  Sender: FDA-Public Use
  Company Number: None

PATIENT
  Age: 52 Year
  Sex: Male
  Weight: 67.5 kg

DRUGS (1)
  1. VASELINE (PETROLATUM) [Suspect]
     Active Substance: PETROLATUM
     Indication: Dry skin prophylaxis
     Dosage: OTHER STRENGTH : OZ;?OTHER QUANTITY : .6 OUNCE(S);?FREQUENCY : AS NEEDED;?
     Route: 061
     Dates: start: 20231215, end: 20231215

REACTIONS (1)
  - Skin irritation [None]

NARRATIVE: CASE EVENT DATE: 20231215
